FAERS Safety Report 5863348-X (Version None)
Quarter: 2008Q3

REPORT INFORMATION
  Report Type: 
  Country: None (occurrence: None)
  Receive Date: 20080828
  Receipt Date: 20080820
  Transmission Date: 20090109
  Serious: Yes (Other)
  Sender: FDA-Public Use
  Company Number: PHHY2008US18681

PATIENT
  Sex: Male
  Weight: 91 kg

DRUGS (1)
  1. EXJADE [Suspect]
     Indication: BLOOD DISORDER
     Dosage: 1500 MG/DAY
     Route: 048
     Dates: start: 20080806

REACTIONS (1)
  - DIARRHOEA HAEMORRHAGIC [None]
